FAERS Safety Report 6549424-7 (Version None)
Quarter: 2010Q1

REPORT INFORMATION
  Report Type: 
  Country: None (occurrence: None)
  Receive Date: 20100125
  Receipt Date: 20100114
  Transmission Date: 20100710
  Serious: Yes (Hospitalization)
  Sender: FDA-Public Use
  Company Number: DE-ELI_LILLY_AND_COMPANY-DE200912001069

PATIENT
  Sex: Male
  Weight: 73.3 kg

DRUGS (6)
  1. SOMATROPIN [Suspect]
     Indication: HYPOPITUITARISM
     Dosage: 0.1 MG, UNK
     Dates: start: 19960501
  2. LEVOTHYROXINE SODIUM [Concomitant]
     Indication: HYPOPITUITARISM
     Dosage: 100 MG, UNK
  3. HYDROCORTISONE [Concomitant]
     Indication: HYPOPITUITARISM
     Dosage: 20 MG, UNK
  4. MINIRIN [Concomitant]
     Indication: HYPOPITUITARISM
     Dosage: 1 INHALATION UNIT, UNK
  5. DHEA [Concomitant]
     Indication: HYPOPITUITARISM
     Dosage: 10 UG, UNK
  6. TESTOSTERONE [Concomitant]
     Indication: HYPOPITUITARISM
     Dosage: 25 MG, UNK

REACTIONS (1)
  - NON-SECRETORY ADENOMA OF PITUITARY [None]
